FAERS Safety Report 10034077 (Version 1)
Quarter: 2014Q1

REPORT INFORMATION
  Report Type: Spontaneous
  Country: US (occurrence: None)
  Receive Date: 20140324
  Receipt Date: 20140324
  Transmission Date: 20141002
  Serious: Yes (Other)
  Sender: FDA-Public Use
  Company Number: None

PATIENT
  Age: 26 Year
  Sex: Female
  Weight: 72.58 kg

DRUGS (1)
  1. SAPHRIS [Suspect]
     Indication: MENTAL DISORDER
     Dosage: 1 TABLET ONCE DAILY TAKEN UNDER THE TONGUE
     Dates: start: 20130603, end: 20140316

REACTIONS (3)
  - Dizziness [None]
  - Insomnia [None]
  - Drug withdrawal syndrome [None]
